FAERS Safety Report 23996292 (Version 1)
Quarter: 2024Q2

REPORT INFORMATION
  Report Type: Spontaneous
  Country: CN (occurrence: CN)
  Receive Date: 20240620
  Receipt Date: 20240620
  Transmission Date: 20240715
  Serious: Yes (Other)
  Sender: FDA-Public Use
  Company Number: CN-PFIZER INC-202400195769

PATIENT
  Age: 74 Year
  Sex: Male

DRUGS (4)
  1. TIGECYCLINE [Suspect]
     Active Substance: TIGECYCLINE
     Indication: Anti-infective therapy
     Dosage: UNK
     Dates: start: 20130606, end: 20130612
  2. MEROPENEM [Concomitant]
     Active Substance: MEROPENEM
     Indication: Anti-infective therapy
     Dosage: UNK
     Dates: start: 20130603, end: 20130607
  3. AMBROXOL [Concomitant]
     Active Substance: AMBROXOL
     Indication: Productive cough
  4. THYMOPENTIN [Concomitant]
     Active Substance: THYMOPENTIN
     Indication: Symptomatic treatment

REACTIONS (3)
  - Pseudomonas infection [Unknown]
  - Platelet count decreased [Recovering/Resolving]
  - Activated partial thromboplastin time prolonged [Recovering/Resolving]
